FAERS Safety Report 18117630 (Version 5)
Quarter: 2021Q1

REPORT INFORMATION
  Report Type: Other
  Country: US (occurrence: US)
  Receive Date: 20200806
  Receipt Date: 20210222
  Transmission Date: 20210419
  Serious: Yes (Other)
  Sender: FDA-Public Use
  Company Number: US-ROCHE-2652561

PATIENT
  Age: 49 Year
  Sex: Female

DRUGS (11)
  1. LABETALOL [Concomitant]
     Active Substance: LABETALOL\LABETALOL HYDROCHLORIDE
     Indication: HYPERTENSION
     Dosage: 20 MG BID
  2. CHLORTHALIDONE. [Concomitant]
     Active Substance: CHLORTHALIDONE
     Indication: HYPERTENSION
     Route: 048
  3. ARIMIDEX [Concomitant]
     Active Substance: ANASTROZOLE
  4. DALFAMPRIDINE. [Concomitant]
     Active Substance: DALFAMPRIDINE
     Route: 048
  5. OCREVUS [Suspect]
     Active Substance: OCRELIZUMAB
     Dosage: THEN 600 MG EVERY 6 MONTHS
     Route: 042
     Dates: start: 20200807
  6. TRANDATE [Concomitant]
     Active Substance: LABETALOL HYDROCHLORIDE
  7. OCREVUS [Suspect]
     Active Substance: OCRELIZUMAB
     Indication: RELAPSING-REMITTING MULTIPLE SCLEROSIS
     Dosage: SUBSEQUENT DOSES: 13/FEB/2018, 27/FEB/2018, 07/AUG/2018, 04/APR/2018, 07/APR/2018, 21/APR/2018, 04/F
     Route: 065
     Dates: start: 201802
  8. OCREVUS [Suspect]
     Active Substance: OCRELIZUMAB
     Dosage: DATE OF TREATMENT:
     Route: 042
     Dates: start: 20200207
  9. VITAMIN D3 [Concomitant]
     Active Substance: CHOLECALCIFEROL
     Dosage: TAKE 2000 UNITS BY MOUTH
     Route: 048
  10. NEURONTIN [Concomitant]
     Active Substance: GABAPENTIN
     Dosage: TAKE 1 CAPSULE BY MOUTH DAILY MAY INCREASE TO 200MG AT NIGHT AFTER 3 DAYS AND?INCREASE TO 300MG AFTE
     Route: 048
     Dates: start: 20200804
  11. BACLOFEN. [Concomitant]
     Active Substance: BACLOFEN
     Dosage: TAKE 1 TABLET IN MORNING, 1 IN AFTERNOON AND 2 AT BEDTIMETABLET

REACTIONS (10)
  - Muscle spasticity [Unknown]
  - Hormone receptor positive breast cancer [Unknown]
  - Fatigue [Unknown]
  - Muscular weakness [Unknown]
  - Bladder disorder [Unknown]
  - Visual impairment [Unknown]
  - Memory impairment [Unknown]
  - JC polyomavirus test positive [Unknown]
  - Gait disturbance [Unknown]
  - Menopausal symptoms [Unknown]

NARRATIVE: CASE EVENT DATE: 20200310
